FAERS Safety Report 5428021-0 (Version None)
Quarter: 2007Q3

REPORT INFORMATION
  Report Type: 
  Country: None (occurrence: None)
  Receive Date: 20070731
  Receipt Date: 20070521
  Transmission Date: 20080115
  Serious: No
  Sender: FDA-Public Use
  Company Number: US200705005483

PATIENT
  Age: 59 Year
  Sex: Female

DRUGS (9)
  1. BYETTA [Suspect]
     Indication: TYPE 2 DIABETES MELLITUS
     Dates: start: 20061229, end: 20070518
  2. CYMBALTA [Concomitant]
  3. CADUET (AMLODIPINE BESILATE, ATORVASTATIN CALCIUM) [Concomitant]
  4. FLOMAX [Concomitant]
  5. VESICARE [Concomitant]
  6. AMBIEN [Concomitant]
  7. NASACORT [Concomitant]
  8. NEXIUM [Concomitant]
  9. BENICAR HCT (HYDROCHLOROTHIAZIDE, OLMESARTAN MEDOXOMIL) [Concomitant]

REACTIONS (24)
  - ASTHENIA [None]
  - BLOOD GLUCOSE DECREASED [None]
  - BLOOD GLUCOSE INCREASED [None]
  - CHILLS [None]
  - CRYING [None]
  - DEHYDRATION [None]
  - DEPRESSION [None]
  - DIARRHOEA [None]
  - DIZZINESS [None]
  - FATIGUE [None]
  - FEELING COLD [None]
  - FEELING HOT [None]
  - HEADACHE [None]
  - HEART RATE INCREASED [None]
  - HUNGER [None]
  - HYPERHIDROSIS [None]
  - NAUSEA [None]
  - NERVOUSNESS [None]
  - PHARYNGITIS STREPTOCOCCAL [None]
  - SINUSITIS [None]
  - SOMNOLENCE [None]
  - STOMACH DISCOMFORT [None]
  - VOMITING [None]
  - WEIGHT DECREASED [None]
